FAERS Safety Report 5704591-X (Version None)
Quarter: 2008Q2

REPORT INFORMATION
  Report Type: 
  Country: None (occurrence: None)
  Receive Date: 20080409
  Receipt Date: 20080401
  Transmission Date: 20081010
  Serious: Yes (Other)
  Sender: FDA-Public Use
  Company Number: CLOF-1000131

PATIENT
  Age: 9 Year

DRUGS (3)
  1. CLOFARABINE [Suspect]
     Indication: ADRENOLEUKODYSTROPHY
     Dosage: 200 MG/M2, INTRAVENOUS
     Route: 042
  2. CAMPATH [Suspect]
     Indication: ADRENOLEUKODYSTROPHY
     Dosage: 1.5 MG/KG, INTRAVENOUS
     Route: 042
  3. MELPHALAN(MELPHALAN) [Suspect]
     Indication: ADRENOLEUKODYSTROPHY
     Dosage: 140 MG/M2, INTRAVENOUS
     Route: 042

REACTIONS (1)
  - ACUTE GRAFT VERSUS HOST DISEASE [None]
